FAERS Safety Report 14684149 (Version 1)
Quarter: 2018Q1

REPORT INFORMATION
  Report Type: Spontaneous
  Country: CH (occurrence: CH)
  Receive Date: 20180327
  Receipt Date: 20180327
  Transmission Date: 20180509
  Serious: Yes (Other)
  Sender: FDA-Public Use
  Company Number: PHHY2018CH036134

PATIENT
  Sex: Female

DRUGS (1)
  1. ESTRADOT [Suspect]
     Active Substance: ESTRADIOL
     Indication: PRODUCT USED FOR UNKNOWN INDICATION
     Dosage: UNK
     Route: 065

REACTIONS (7)
  - Contusion [Recovering/Resolving]
  - Reynold^s syndrome [Unknown]
  - Hypoaesthesia [Unknown]
  - Chillblains [Recovering/Resolving]
  - Conjunctival haemorrhage [Unknown]
  - Blister [Unknown]
  - Peripheral coldness [Unknown]
